FAERS Safety Report 22646543 (Version 5)
Quarter: 2023Q4

REPORT INFORMATION
  Report Type: Spontaneous
  Country: US (occurrence: US)
  Receive Date: 20230627
  Receipt Date: 20231219
  Transmission Date: 20240109
  Serious: Yes (Other)
  Sender: FDA-Public Use
  Company Number: US-PFIZER INC-PV202300112307

PATIENT
  Age: 72 Year
  Sex: Female
  Weight: 57.61 kg

DRUGS (1)
  1. XELJANZ XR [Suspect]
     Active Substance: TOFACITINIB CITRATE
     Indication: Rheumatoid arthritis
     Dosage: 11 MG, 1X/DAY

REACTIONS (8)
  - Pain in extremity [Unknown]
  - Arthralgia [Unknown]
  - Chondrocalcinosis [Unknown]
  - Drug ineffective [Unknown]
  - Crying [Unknown]
  - Osteoarthritis [Unknown]
  - Headache [Not Recovered/Not Resolved]
  - Sinusitis [Unknown]
